FAERS Safety Report 6341603-7 (Version None)
Quarter: 2009Q3

REPORT INFORMATION
  Report Type: 
  Country: None (occurrence: None)
  Receive Date: 20090902
  Receipt Date: 20090902
  Transmission Date: 20100115
  Serious: Yes (Other)
  Sender: FDA-Public Use
  Company Number: None

PATIENT
  Age: 52 Year
  Sex: Male

DRUGS (1)
  1. FENTANYL TRANSDERMAL SYSTEM [Suspect]
     Indication: BACK PAIN
     Dosage: APPLY 1 PATCH EVERY 3 DAYS
     Route: 062
     Dates: start: 20090801, end: 20090807

REACTIONS (3)
  - DRUG WITHDRAWAL SYNDROME [None]
  - INADEQUATE ANALGESIA [None]
  - PRODUCT SUBSTITUTION ISSUE [None]
